FAERS Safety Report 4721081-1 (Version None)
Quarter: 2005Q3

REPORT INFORMATION
  Report Type: 
  Country: None (occurrence: None)
  Receive Date: 20050719
  Receipt Date: 20041108
  Transmission Date: 20060218
  Serious: Yes (Other)
  Sender: FDA-Public Use
  Company Number: 2004091360

PATIENT
  Age: 70 Year
  Sex: Female
  Weight: 55.3388 kg

DRUGS (3)
  1. CELEBREX [Suspect]
     Indication: MUSCLE INJURY
     Dosage: (2 IN 1 D), ORAL
     Route: 048
     Dates: start: 20030801
  2. ALPRAZOLAM [Concomitant]
  3. ASPIRIN [Concomitant]

REACTIONS (7)
  - CEREBROVASCULAR ACCIDENT [None]
  - DRUG TOLERANCE DECREASED [None]
  - EXTRAOCULAR MUSCLE PARESIS [None]
  - FEELING ABNORMAL [None]
  - MEMORY IMPAIRMENT [None]
  - STRESS [None]
  - VISUAL ACUITY REDUCED [None]
